FAERS Safety Report 18997658 (Version 2)
Quarter: 2021Q1

REPORT INFORMATION
  Report Type: Spontaneous
  Country: IL (occurrence: IL)
  Receive Date: 20210311
  Receipt Date: 20210324
  Transmission Date: 20210420
  Serious: Yes (Hospitalization, Other)
  Sender: FDA-Public Use
  Company Number: IL-VERTEX PHARMACEUTICALS-2021-003768

PATIENT
  Age: 34 Year
  Sex: Female

DRUGS (11)
  1. VENTOLIN [Concomitant]
     Active Substance: ALBUTEROL SULFATE
     Dosage: SOLUTION
     Route: 055
     Dates: start: 20110504
  2. PULMOZYME [Concomitant]
     Active Substance: DORNASE ALFA
     Dosage: RESPIRATORY
     Dates: start: 20110504
  3. ORKAMBI [Suspect]
     Active Substance: IVACAFTOR\LUMACAFTOR
     Indication: CYSTIC FIBROSIS
     Dosage: 2 TABLETS, BID
     Route: 048
     Dates: start: 20180412
  4. MUCOCLEAR [SODIUM CHLORIDE] [Concomitant]
     Dosage: 6% SOLUTION
     Dates: start: 20140124
  5. AZITHROMYCIN ANHYDROUS. [Concomitant]
     Active Substance: AZITHROMYCIN ANHYDROUS
     Dosage: TABLETS
     Dates: start: 20110504
  6. COLISTIMETHATE SODIUM. [Concomitant]
     Active Substance: COLISTIMETHATE SODIUM
     Dosage: INJECTION
     Dates: start: 20050523
  7. CREON [Concomitant]
     Active Substance: PANCRELIPASE AMYLASE\PANCRELIPASE LIPASE\PANCRELIPASE PROTEASE
     Dosage: 150MG CAPSULE
     Dates: start: 20070605
  8. FOLIC ACID. [Concomitant]
     Active Substance: FOLIC ACID
     Dosage: 1 TABLET DH
     Dates: start: 20180904
  9. NOVORAPID [Concomitant]
     Active Substance: INSULIN ASPART
     Dosage: 10 ML AMPOULE
     Dates: start: 20170820
  10. COLECALCIFEROL [Concomitant]
     Active Substance: CHOLECALCIFEROL
     Dosage: 5 DROPS
     Dates: start: 20150310
  11. COLISTIN [Concomitant]
     Active Substance: COLISTIN
     Dosage: INJECTION
     Dates: start: 20110504

REACTIONS (2)
  - Foetal death [Unknown]
  - Exposure during pregnancy [Unknown]

NARRATIVE: CASE EVENT DATE: 20210226
